FAERS Safety Report 25519347 (Version 1)
Quarter: 2025Q3

REPORT INFORMATION
  Report Type: Spontaneous
  Country: US (occurrence: US)
  Receive Date: 20250704
  Receipt Date: 20250704
  Transmission Date: 20251021
  Serious: No
  Sender: GLAND PHARMA LTD
  Company Number: US-GLANDPHARMA-US-2025GLNSPO01499

PATIENT
  Age: 58 Year
  Sex: Male

DRUGS (1)
  1. BROMFENAC OPHTHALMIC SOLUTION 0.09% [Suspect]
     Active Substance: BROMFENAC SODIUM
     Indication: Eye inflammation
     Dates: start: 2025

REACTIONS (3)
  - Intentional dose omission [Unknown]
  - Product use issue [Unknown]
  - Product packaging quantity issue [Unknown]

NARRATIVE: CASE EVENT DATE: 20250101
